FAERS Safety Report 12059661 (Version 1)
Quarter: 2016Q1

REPORT INFORMATION
  Report Type: Spontaneous
  Country: ES (occurrence: ES)
  Receive Date: 20160210
  Receipt Date: 20160210
  Transmission Date: 20160526
  Serious: Yes (Other)
  Sender: FDA-Public Use
  Company Number: ES-ELI_LILLY_AND_COMPANY-ES201601010639

PATIENT
  Age: 85 Year
  Sex: Female

DRUGS (1)
  1. FORSTEO [Suspect]
     Active Substance: TERIPARATIDE
     Indication: PRODUCT USED FOR UNKNOWN INDICATION
     Dosage: UNK, UNKNOWN
     Route: 065
     Dates: start: 20160104, end: 20160122

REACTIONS (3)
  - Gait disturbance [Unknown]
  - Syncope [Unknown]
  - Microembolism [Unknown]

NARRATIVE: CASE EVENT DATE: 20160122
